FAERS Safety Report 6537775-1 (Version None)
Quarter: 2010Q1

REPORT INFORMATION
  Report Type: 
  Country: None (occurrence: None)
  Receive Date: 20100114
  Receipt Date: 20100104
  Transmission Date: 20100710
  Serious: Yes (Hospitalization)
  Sender: FDA-Public Use
  Company Number: GB-PFIZER INC-2010000153

PATIENT
  Age: 29 Year
  Sex: Female

DRUGS (4)
  1. EPIRUBICIN HYDROCHLORIDE [Suspect]
     Dosage: 165 MG, 1X/DAY
     Route: 042
     Dates: start: 20090326, end: 20090326
  2. FLUOROURACIL [Suspect]
     Dosage: 820 MG, 1X/DAY
     Route: 042
     Dates: start: 20090326, end: 20090326
  3. CYCLOPHOSPHAMIDE [Suspect]
     Dosage: 820 MG, 1X/DAY
     Route: 042
     Dates: start: 20090326, end: 20090326
  4. NEULASTA [Suspect]
     Indication: CHEMOTHERAPY
     Dosage: 6 MG, 1X/DAY
     Route: 058
     Dates: start: 20090327, end: 20090327

REACTIONS (6)
  - ABDOMINAL PAIN [None]
  - BLOOD PRESSURE DECREASED [None]
  - BODY TEMPERATURE INCREASED [None]
  - FEBRILE NEUTROPENIA [None]
  - HAEMOGLOBIN DECREASED [None]
  - TACHYCARDIA [None]
